FAERS Safety Report 4318639-0 (Version None)
Quarter: 2004Q1

REPORT INFORMATION
  Report Type: 
  Country: None (occurrence: None)
  Receive Date: 20040315
  Receipt Date: 20040303
  Transmission Date: 20041129
  Serious: Yes (Death, Hospitalization)
  Sender: FDA-Public Use
  Company Number: 04P-144-0251644-00

PATIENT
  Age: 34 Year
  Sex: Male

DRUGS (3)
  1. KALETRA [Suspect]
     Indication: HIV INFECTION
     Dosage: 3 CAPSULE, 2 IN 1 D, PER ORAL
     Route: 048
     Dates: start: 20030507
  2. STAVUDINE [Concomitant]
  3. LAMIVUDINE [Concomitant]

REACTIONS (9)
  - BLOOD CULTURE POSITIVE [None]
  - CACHEXIA [None]
  - ENCEPHALOPATHY [None]
  - ENDOCARDITIS STAPHYLOCOCCAL [None]
  - OPPORTUNISTIC INFECTION [None]
  - PNEUMOCYSTIS CARINII PNEUMONIA [None]
  - PULMONARY EMBOLISM [None]
  - RESPIRATORY FAILURE [None]
  - STAPHYLOCOCCAL INFECTION [None]
